FAERS Safety Report 5419467-5 (Version None)
Quarter: 2007Q3

REPORT INFORMATION
  Report Type: 
  Country: None (occurrence: None)
  Receive Date: 20070820
  Receipt Date: 20070817
  Transmission Date: 20080115
  Serious: Yes (Other)
  Sender: FDA-Public Use
  Company Number: D0054308A

PATIENT
  Age: 55 Year
  Sex: Male

DRUGS (3)
  1. ELONTRIL [Suspect]
     Indication: DEPRESSION
     Dosage: 150MG PER DAY
     Route: 048
     Dates: start: 20070701
  2. LITHIUM CARBONATE [Concomitant]
     Route: 048
  3. METFORMIN HCL [Concomitant]
     Route: 048

REACTIONS (3)
  - ASTHENIA [None]
  - PARKINSONISM [None]
  - TREMOR [None]
